FAERS Safety Report 9479565 (Version 1)
Quarter: 2013Q3

REPORT INFORMATION
  Report Type: Spontaneous
  Country: US (occurrence: US)
  Receive Date: 20130827
  Receipt Date: 20130827
  Transmission Date: 20140515
  Serious: No
  Sender: FDA-Public Use
  Company Number: US-009507513-1308USA000619

PATIENT
  Sex: Male

DRUGS (1)
  1. ZOCOR [Suspect]
     Indication: BLOOD CHOLESTEROL INCREASED
     Dosage: UNK
     Route: 048
     Dates: start: 201007, end: 2013

REACTIONS (2)
  - Prostatic pain [Recovering/Resolving]
  - Muscle spasms [Recovering/Resolving]
